FAERS Safety Report 9314450 (Version 1)
Quarter: 2013Q2

REPORT INFORMATION
  Report Type: Spontaneous
  Country: US (occurrence: US)
  Receive Date: 20130529
  Receipt Date: 20130529
  Transmission Date: 20140414
  Serious: No
  Sender: FDA-Public Use
  Company Number: US-PFIZER INC-2013159532

PATIENT
  Age: 73 Year
  Sex: Male

DRUGS (3)
  1. VIAGRA [Suspect]
     Indication: ERECTILE DYSFUNCTION
     Dosage: 25 MG, AS NEEDED
     Dates: start: 201304
  2. TRANDATE [Concomitant]
     Indication: HYPERTENSION
     Dosage: 200 MG, 2X/DAY
  3. COUMADIN [Concomitant]
     Indication: CARDIAC DISORDER
     Dosage: 2.5 MG DAILY FROM MONDAY TO SATURDAY AND 5 MG DAILY ON SUNDAYS

REACTIONS (1)
  - Drug ineffective [Unknown]
